FAERS Safety Report 15121851 (Version 1)
Quarter: 2018Q3

REPORT INFORMATION
  Report Type: Spontaneous
  Country: US (occurrence: US)
  Receive Date: 20180709
  Receipt Date: 20180709
  Transmission Date: 20181010
  Serious: No
  Sender: FDA-Public Use
  Company Number: US-MYLANLABS-2018M1046033

PATIENT
  Sex: Female
  Weight: 90 kg

DRUGS (2)
  1. CORTISONE [Concomitant]
     Active Substance: CORTISONE\HYDROCORTISONE
     Indication: PRODUCT USED FOR UNKNOWN INDICATION
     Dosage: UNK
  2. ESTRADIOL TRANSDERMAL SYSTEM [Suspect]
     Active Substance: ESTRADIOL
     Indication: HORMONE REPLACEMENT THERAPY
     Dosage: UNK, BIWEEKLY
     Route: 062

REACTIONS (4)
  - Application site rash [Recovered/Resolved]
  - Application site urticaria [Recovered/Resolved]
  - Pruritus [Unknown]
  - Wrong technique in product usage process [Unknown]
